FAERS Safety Report 7968416-4 (Version None)
Quarter: 2011Q4

REPORT INFORMATION
  Report Type: 
  Country: None (occurrence: None)
  Receive Date: 20111209
  Receipt Date: 20111130
  Transmission Date: 20120403
  Serious: Yes (Death, Congenital Anomaly)
  Sender: FDA-Public Use
  Company Number: FR-BRISTOL-MYERS SQUIBB COMPANY-16262636

PATIENT

DRUGS (7)
  1. EFFERALGAN CODEINE EFFER TABS [Suspect]
     Route: 064
     Dates: start: 20081210, end: 20081231
  2. ACETAMINOPHEN [Suspect]
     Dosage: FORMULATION:KLIPAL 500 MG SCORED TABLET
     Route: 064
     Dates: start: 20081210, end: 20081231
  3. MONUROL [Suspect]
     Dosage: MONURIL ADULT GRANULES FOR ORAL SOLUTION IN SACHETS
     Route: 064
     Dates: start: 20081221
  4. KETOPROFEN [Suspect]
     Route: 064
     Dates: start: 20081210, end: 20081231
  5. FUNGIZONE [Suspect]
     Route: 064
     Dates: start: 20081222
  6. PYOSTACINE [Suspect]
     Route: 064
     Dates: start: 20081201, end: 20081210
  7. ACETAMINOPHEN [Suspect]
     Dosage: TAB
     Route: 064
     Dates: start: 20081210, end: 20081231

REACTIONS (1)
  - CONGENITAL CENTRAL NERVOUS SYSTEM ANOMALY [None]
